FAERS Safety Report 5528736-X (Version None)
Quarter: 2007Q4

REPORT INFORMATION
  Report Type: 
  Country: None (occurrence: None)
  Receive Date: 20071113
  Receipt Date: 20070626
  Transmission Date: 20080405
  Serious: Yes (Hospitalization)
  Sender: FDA-Public Use
  Company Number: 2007-160562-NL

PATIENT
  Age: 30 Year
  Sex: Female
  Weight: 69.9 kg

DRUGS (5)
  1. PUREGON [Suspect]
     Indication: INFERTILITY
     Dosage: 150 IU QD SUBCUTANEOUS, PREMIXED VIALS
     Route: 058
     Dates: start: 20070511, end: 20070511
  2. PUREGON [Suspect]
     Indication: INFERTILITY
     Dosage: 75 IU QD SUBCUTANEOUS, PREMIXED VIALS
     Route: 058
     Dates: start: 20070511, end: 20070511
  3. CHORIONIC GONADOTROPIN [Suspect]
     Indication: INFERTILITY
     Dosage: 10000 IU SUBCUTANEOUS
     Route: 058
     Dates: start: 20070513
  4. REPRONEX [Suspect]
     Indication: INFERTILITY
     Dosage: 150 IU QD SUBCUTANEOUS
     Route: 058
     Dates: start: 20070505, end: 20070507
  5. REPRONEX [Suspect]
     Indication: INFERTILITY
     Dosage: 75 IU QD SUBCUTANEOUS
     Route: 058
     Dates: start: 20070508, end: 20070512

REACTIONS (1)
  - OVARIAN HYPERSTIMULATION SYNDROME [None]
